FAERS Safety Report 23639316 (Version 1)
Quarter: 2024Q1

REPORT INFORMATION
  Report Type: Spontaneous
  Country: RU (occurrence: None)
  Receive Date: 20240316
  Receipt Date: 20240316
  Transmission Date: 20240410
  Serious: Yes (Hospitalization)
  Sender: FDA-Public Use
  Company Number: RU-ROCHE-3523244

PATIENT
  Age: 73 Year
  Sex: Female

DRUGS (6)
  1. TRASTUZUMAB [Suspect]
     Active Substance: TRASTUZUMAB
     Indication: Breast cancer
     Route: 065
  2. PERJETA [Suspect]
     Active Substance: PERTUZUMAB
     Indication: Breast cancer
     Route: 042
     Dates: start: 20230927
  3. INVESTIGATIONAL BIOSIMILARS [Suspect]
     Active Substance: INVESTIGATIONAL BIOSIMILARS
     Indication: Breast cancer
     Route: 042
     Dates: start: 20230927
  4. DOCETAXEL [Suspect]
     Active Substance: DOCETAXEL\DOCETAXEL ANHYDROUS
     Indication: Breast cancer
     Route: 042
     Dates: start: 20230927
  5. CARBOPLATIN [Suspect]
     Active Substance: CARBOPLATIN
     Indication: Breast cancer
     Route: 065
  6. EMPEGFILGRASTIM [Suspect]
     Active Substance: EMPEGFILGRASTIM
     Indication: Leukopenia
     Route: 042
     Dates: start: 20230929

REACTIONS (11)
  - Lung neoplasm [Unknown]
  - Aortic arteriosclerosis [Unknown]
  - Arteriosclerosis coronary artery [Unknown]
  - Poisoning [Unknown]
  - Blood disorder [Unknown]
  - Renal cyst [Unknown]
  - Cholelithiasis [Unknown]
  - Aortic valve calcification [Unknown]
  - Aortic arteriosclerosis [Unknown]
  - Left ventricular hypertrophy [Unknown]
  - Asthenia [Unknown]
